FAERS Safety Report 4677762-1 (Version None)
Quarter: 2005Q2

REPORT INFORMATION
  Report Type: 
  Country: None (occurrence: None)
  Receive Date: 20050527
  Receipt Date: 20050517
  Transmission Date: 20051028
  Serious: Yes (Other)
  Sender: FDA-Public Use
  Company Number: SUSI-2005-00405

PATIENT
  Age: 35 Year
  Sex: Female
  Weight: 54.4 kg

DRUGS (10)
  1. ADDERALL XR 25 [Suspect]
     Indication: ATTENTION DEFICIT/HYPERACTIVITY DISORDER
     Dosage: SEE IMAGE
     Dates: start: 20041201, end: 20041218
  2. ADDERALL XR 25 [Suspect]
     Indication: ATTENTION DEFICIT/HYPERACTIVITY DISORDER
     Dosage: SEE IMAGE
     Dates: start: 20041201, end: 20050105
  3. ADDERALL XR 25 [Suspect]
     Indication: ATTENTION DEFICIT/HYPERACTIVITY DISORDER
     Dosage: SEE IMAGE
     Dates: start: 20050105, end: 20050205
  4. ADDERALL XR 25 [Suspect]
     Indication: ATTENTION DEFICIT/HYPERACTIVITY DISORDER
     Dosage: SEE IMAGE
     Dates: start: 20050420
  5. AMITRIPTYLINE HCL [Concomitant]
  6. SOMA [Concomitant]
  7. LEXAPRO [Concomitant]
  8. FORVIA [Concomitant]
  9. FLORA-Q [Concomitant]
  10. POLYCITRA-K ^WILLEN^ (CITRIC ACID MONOHYDRATE, POTASSIUM CITRATE) [Concomitant]

REACTIONS (4)
  - INFLUENZA [None]
  - NEPHROLITHIASIS [None]
  - PAIN [None]
  - TREATMENT NONCOMPLIANCE [None]
